FAERS Safety Report 9154482 (Version 1)
Quarter: 2013Q1

REPORT INFORMATION
  Report Type: Report from Study
  Country: US (occurrence: US)
  Receive Date: 20130311
  Receipt Date: 20130311
  Transmission Date: 20140127
  Serious: No
  Sender: FDA-Public Use
  Company Number: US-ABBOTT-13P-163-1054140-00

PATIENT
  Sex: Female
  Weight: 63.56 kg

DRUGS (5)
  1. LUPRON DEPOT [Suspect]
     Indication: ENDOMETRIOSIS
     Route: 030
     Dates: start: 20121130
  2. ZONEGRAN [Concomitant]
     Indication: MIGRAINE
     Dosage: 500 MG DAILY
     Route: 048
     Dates: start: 2008
  3. ZONEGRAN [Concomitant]
     Indication: CONVULSION
  4. RELPAX [Concomitant]
     Indication: MIGRAINE
  5. CALCIUM [Concomitant]
     Indication: PRODUCT USED FOR UNKNOWN INDICATION
     Dosage: 2 PILLS PER DAY

REACTIONS (3)
  - Arthralgia [Not Recovered/Not Resolved]
  - Pain [Not Recovered/Not Resolved]
  - Musculoskeletal stiffness [Not Recovered/Not Resolved]
